FAERS Safety Report 5920261-7 (Version None)
Quarter: 2008Q4

REPORT INFORMATION
  Report Type: 
  Country: None (occurrence: None)
  Receive Date: 20081016
  Receipt Date: 20081014
  Transmission Date: 20090506
  Serious: Yes (Other)
  Sender: FDA-Public Use
  Company Number: US-ELI_LILLY_AND_COMPANY-US200809006314

PATIENT
  Sex: Female
  Weight: 64.9 kg

DRUGS (5)
  1. TERIPARATIDE [Suspect]
     Indication: OSTEOPOROSIS
     Dosage: 20 UG, DAILY (1/D)
     Route: 058
     Dates: start: 20060518
  2. CALTRATE [Concomitant]
     Indication: OSTEOPOROSIS
     Dates: start: 20030101
  3. EVISTA [Concomitant]
     Indication: OSTEOPOROSIS
     Dates: start: 20031001
  4. VITAMIN D [Concomitant]
     Indication: OSTEOPOROSIS
     Dates: start: 20050101
  5. SYNTHROID [Concomitant]
     Indication: HYPOTHYROIDISM

REACTIONS (1)
  - RENAL AMYLOIDOSIS [None]
